FAERS Safety Report 14758329 (Version 1)
Quarter: 2018Q2

REPORT INFORMATION
  Report Type: Spontaneous
  Country: JP (occurrence: JP)
  Receive Date: 20180413
  Receipt Date: 20180413
  Transmission Date: 20180711
  Serious: Yes (Other)
  Sender: FDA-Public Use
  Company Number: JP-PERRIGO-18JP003806

PATIENT
  Age: 67 Year
  Sex: Male

DRUGS (7)
  1. PREDNISOLONE. [Concomitant]
     Active Substance: PREDNISOLONE
     Dosage: 2.5 MG, QD
     Route: 048
  2. ASPIRIN                            /00002701/ [Concomitant]
     Active Substance: ASPIRIN
     Indication: PRODUCT USED FOR UNKNOWN INDICATION
     Dosage: 100 MG, QD
     Route: 048
  3. PREDNISOLONE. [Concomitant]
     Active Substance: PREDNISOLONE
     Indication: DECREASED APPETITE
     Dosage: 5 MG, QD
     Route: 048
  4. LANSOPRAZOLE. [Suspect]
     Active Substance: LANSOPRAZOLE
     Indication: PRODUCT USED FOR UNKNOWN INDICATION
     Dosage: 15 MG, QD FOR MORE THAN 4 YEARS
     Route: 048
  5. PREDNISOLONE. [Concomitant]
     Active Substance: PREDNISOLONE
     Indication: FATIGUE
     Dosage: 10 MG, QD
     Route: 048
  6. NIVOLUMAB [Concomitant]
     Active Substance: NIVOLUMAB
     Indication: LUNG NEOPLASM MALIGNANT
     Dosage: 3 MG/KG, EVERY TWO WEEKS
     Route: 042
     Dates: start: 201604, end: 201701
  7. WARFARIN [Concomitant]
     Active Substance: WARFARIN
     Indication: ATRIAL FIBRILLATION
     Dosage: 1 MG, QD
     Route: 065

REACTIONS (1)
  - Tubulointerstitial nephritis [Recovered/Resolved]
